FAERS Safety Report 6028988-6 (Version None)
Quarter: 2009Q1

REPORT INFORMATION
  Report Type: 
  Country: None (occurrence: None)
  Receive Date: 20090106
  Receipt Date: 20081229
  Transmission Date: 20090719
  Serious: Yes (Other)
  Sender: FDA-Public Use
  Company Number: US-AMGEN-QUU282224

PATIENT
  Sex: Male
  Weight: 70.4 kg

DRUGS (9)
  1. ENBREL [Suspect]
     Indication: PSORIATIC ARTHROPATHY
     Route: 058
     Dates: start: 20070307, end: 20080506
  2. ENBREL [Suspect]
     Indication: PSORIASIS
  3. DILTIAZEM [Concomitant]
     Dates: start: 20000101
  4. CELEBREX [Concomitant]
     Dates: start: 20040101
  5. NADOLOL [Concomitant]
     Dates: start: 20070101
  6. UNSPECIFIED MEDICATION [Concomitant]
     Dates: start: 20070101
  7. CALCIPOTRIENE [Concomitant]
     Dates: start: 20070506
  8. OLUX [Concomitant]
     Dates: start: 20070506
  9. TEMOVATE [Concomitant]
     Dates: start: 20080411

REACTIONS (1)
  - HEPATIC CIRRHOSIS [None]
